FAERS Safety Report 6299707-3 (Version None)
Quarter: 2009Q3

REPORT INFORMATION
  Report Type: 
  Country: None (occurrence: None)
  Receive Date: 20090806
  Receipt Date: 20090728
  Transmission Date: 20100115
  Serious: Yes (Hospitalization, Other)
  Sender: FDA-Public Use
  Company Number: US-JNJFOC-20090505354

PATIENT
  Sex: Female

DRUGS (16)
  1. REMICADE [Suspect]
     Route: 042
  2. REMICADE [Suspect]
     Route: 042
  3. REMICADE [Suspect]
     Route: 042
  4. REMICADE [Suspect]
     Indication: CROHN'S DISEASE
     Route: 042
  5. ALPRAZOLAM [Concomitant]
  6. BENADRYL [Concomitant]
     Indication: PREMEDICATION
     Route: 042
  7. FENTANYL [Concomitant]
     Indication: PREMEDICATION
     Route: 042
  8. COLAZAL [Concomitant]
  9. ZYDONE [Concomitant]
  10. SYNTHROID [Concomitant]
  11. HYDROXYZINE [Concomitant]
  12. AZATHIOPRINE [Concomitant]
  13. AMITRIPTYLINE HCL [Concomitant]
  14. LEVOXYL [Concomitant]
  15. LISINOPRIL [Concomitant]
  16. HYDROCHLOROTHIAZIDE [Concomitant]

REACTIONS (15)
  - ABDOMINAL PAIN UPPER [None]
  - ANGINA PECTORIS [None]
  - ANXIETY [None]
  - AORTIC ARTERIOSCLEROSIS [None]
  - BACK PAIN [None]
  - CHEST DISCOMFORT [None]
  - CORONARY ARTERIAL STENT INSERTION [None]
  - CROHN'S DISEASE [None]
  - DYSPNOEA [None]
  - INTESTINAL OBSTRUCTION [None]
  - MITRAL VALVE CALCIFICATION [None]
  - TREMOR [None]
  - TRICUSPID VALVE INCOMPETENCE [None]
  - VENTRICULAR EXTRASYSTOLES [None]
  - VENTRICULAR TACHYCARDIA [None]
